FAERS Safety Report 11146524 (Version 4)
Quarter: 2015Q4

REPORT INFORMATION
  Report Type: Spontaneous
  Country: US (occurrence: US)
  Receive Date: 20150528
  Receipt Date: 20151023
  Transmission Date: 20160304
  Serious: Yes (Hospitalization, Other)
  Sender: FDA-Public Use
  Company Number: US-JNJFOC-20150510586

PATIENT
  Age: 41 Year
  Sex: Male
  Weight: 92.99 kg

DRUGS (4)
  1. RISPERDAL [Suspect]
     Active Substance: RISPERIDONE
     Indication: SCHIZOPHRENIA, PARANOID TYPE
     Route: 048
     Dates: start: 1999
  2. ASPIRIN. [Concomitant]
     Active Substance: ASPIRIN
  3. RISPERDAL CONSTA [Suspect]
     Active Substance: RISPERIDONE
     Indication: SCHIZOPHRENIA, PARANOID TYPE
     Route: 030
  4. VIOXX [Concomitant]
     Active Substance: ROFECOXIB
     Indication: PRODUCT USED FOR UNKNOWN INDICATION
     Route: 065
     Dates: start: 2007

REACTIONS (12)
  - Dizziness [Not Recovered/Not Resolved]
  - Myositis [Unknown]
  - Toe amputation [Unknown]
  - Fatigue [Not Recovered/Not Resolved]
  - Weight increased [Unknown]
  - Gynaecomastia [Recovering/Resolving]
  - Hypersensitivity [Unknown]
  - Thinking abnormal [Unknown]
  - Adverse event [Unknown]
  - Ocular hyperaemia [Unknown]
  - Hospitalisation [Recovered/Resolved]
  - Limb discomfort [Unknown]

NARRATIVE: CASE EVENT DATE: 20130515
